FAERS Safety Report 15765370 (Version 1)
Quarter: 2018Q4

REPORT INFORMATION
  Report Type: Spontaneous
  Country: BR (occurrence: BR)
  Receive Date: 20181227
  Receipt Date: 20181227
  Transmission Date: 20190205
  Serious: Yes (Other)
  Sender: FDA-Public Use
  Company Number: BR-BAYER-2018-178700

PATIENT
  Age: 42 Year
  Sex: Female

DRUGS (5)
  1. MIRENA [Suspect]
     Active Substance: LEVONORGESTREL
     Indication: MENSTRUAL CYCLE MANAGEMENT
     Dosage: 20 MCG/24HR, CONT
     Route: 015
     Dates: start: 20180802, end: 20181123
  2. MIRENA [Suspect]
     Active Substance: LEVONORGESTREL
     Indication: LEIOMYOMA
     Dates: start: 20180802, end: 20181006
  3. RANITIDINE. [Concomitant]
     Active Substance: RANITIDINE
     Indication: ABDOMINAL PAIN UPPER
     Dosage: UNK
     Route: 042
     Dates: start: 20180913, end: 20180913
  4. BUSCOPAN [Concomitant]
     Active Substance: BUTYLSCOPOLAMINE BROMIDE
     Indication: ABDOMINAL PAIN UPPER
     Dosage: UNK
     Route: 042
     Dates: start: 20180913, end: 20180913
  5. MIRENA [Suspect]
     Active Substance: LEVONORGESTREL
     Indication: MENSTRUAL CYCLE MANAGEMENT

REACTIONS (14)
  - Device use issue [Recovered/Resolved]
  - Vaginal haemorrhage [Not Recovered/Not Resolved]
  - Anaemia [Not Recovered/Not Resolved]
  - Ovarian cyst [Not Recovered/Not Resolved]
  - Skin discolouration [None]
  - Tachycardia [Not Recovered/Not Resolved]
  - Fatigue [Not Recovered/Not Resolved]
  - Abdominal pain lower [Not Recovered/Not Resolved]
  - Genital burning sensation [None]
  - Vulvovaginal discomfort [None]
  - Vulvovaginal rash [None]
  - Asthenia [Not Recovered/Not Resolved]
  - Pre-existing condition improved [None]
  - Off label use of device [Recovered/Resolved]

NARRATIVE: CASE EVENT DATE: 2018
